FAERS Safety Report 6617236-1 (Version None)
Quarter: 2010Q1

REPORT INFORMATION
  Report Type: 
  Country: None (occurrence: None)
  Receive Date: 20100307
  Receipt Date: 20090224
  Transmission Date: 20100710
  Serious: No
  Sender: FDA-Public Use
  Company Number: US-BAYER-200835655NA

PATIENT
  Age: 13 Year
  Sex: Female

DRUGS (3)
  1. YAZ [Suspect]
     Dosage: MEDICATION WAS NEVER TAKEN BY PATIENT
  2. OVCON-35 [Suspect]
     Indication: DYSFUNCTIONAL UTERINE BLEEDING
  3. NSAID [Concomitant]
     Indication: DRUG USE FOR UNKNOWN INDICATION

REACTIONS (3)
  - DEEP VEIN THROMBOSIS [None]
  - PELVIC VENOUS THROMBOSIS [None]
  - TRAUMATIC HAEMATOMA [None]
